FAERS Safety Report 8832146 (Version 1)
Quarter: 2012Q4

REPORT INFORMATION
  Report Type: 
  Country: US (occurrence: US)
  Receive Date: 20121009
  Receipt Date: 20121009
  Transmission Date: 20130627
  Serious: Yes (Other)
  Sender: FDA-Public Use
  Company Number: US-PERRIGO-12US008541

PATIENT
  Sex: Female
  Weight: 65.76 kg

DRUGS (10)
  1. NICOTINE 4 MG MINT 873 [Suspect]
     Indication: SMOKING CESSATION THERAPY
     Dosage: 4 mg, q 3 hours
     Route: 002
  2. EPINEPHRINE [Concomitant]
     Indication: HYPERSENSITIVITY
     Dosage: Unknown, prn
     Route: 030
  3. PRILOSEC [Concomitant]
     Indication: GASTROOESOPHAGEAL REFLUX DISEASE
     Dosage: Unknown, Unknown
     Route: 048
  4. ASPIRIN E.C [Concomitant]
     Indication: ANTICOAGULANT THERAPY
     Dosage: UNK, 325mg
     Route: 048
  5. KLONOPIN [Concomitant]
     Indication: DIZZINESS
     Dosage: Unknown, Unknown
     Route: 048
  6. LABETALOL [Concomitant]
     Indication: HYPERTENSION
     Dosage: Unknown, Unknown
     Route: 048
     Dates: start: 20120730
  7. LABETALOL [Concomitant]
     Indication: CHEST PAIN
  8. FIORICET WITH CODEINE [Concomitant]
     Indication: MIGRAINE
     Dosage: Unknown, Unknown
     Route: 048
  9. HYDROMORPHONE [Concomitant]
     Indication: PAIN
     Dosage: Unknown, Unknown
     Route: 048
  10. TOPAMAX [Concomitant]
     Indication: NERVOUS SYSTEM DISORDER
     Dosage: Unknown, Unknown
     Route: 048

REACTIONS (4)
  - Pharyngeal oedema [Recovered/Resolved]
  - Dyspnoea [Recovered/Resolved]
  - Urticaria [Recovered/Resolved]
  - Hypersensitivity [Recovered/Resolved]
